FAERS Safety Report 9370667 (Version 4)
Quarter: 2013Q3

REPORT INFORMATION
  Report Type: Report from Study
  Country: US (occurrence: US)
  Receive Date: 20130626
  Receipt Date: 20130724
  Transmission Date: 20140515
  Serious: Yes (Death)
  Sender: FDA-Public Use
  Company Number: US-PFIZER INC-2013187794

PATIENT
  Age: 73 Year
  Sex: Male
  Weight: 89.4 kg

DRUGS (41)
  1. PF-04449913 [Suspect]
     Indication: ACUTE MYELOID LEUKAEMIA
     Dosage: 100 MG, 1X/DAY, CONTINUOUS
     Route: 048
     Dates: start: 20130612, end: 20130621
  2. CYTARABINE [Suspect]
     Indication: ACUTE MYELOID LEUKAEMIA
     Dosage: 20 MG, CYCLIC (TWICE DAILY ON DAYS 1-10 OF EACH 28 DAY CYCLE)
     Route: 058
     Dates: start: 20130612, end: 20130621
  3. ACETAMINOPHEN [Concomitant]
     Indication: PAIN MANAGEMENT
     Dosage: UNK
     Dates: start: 20120608
  4. ACETAMINOPHEN [Concomitant]
     Indication: BACK PAIN
  5. ZYLOPRIM [Concomitant]
     Indication: PROPHYLAXIS
     Dosage: UNK
  6. VITAMIN D [Concomitant]
     Indication: SUPPLEMENTATION THERAPY
     Dosage: UNK
  7. CARVEDILOL [Concomitant]
     Indication: CORONARY ARTERY DISEASE
     Dosage: UNK
     Dates: start: 20120705
  8. CELEXA [Concomitant]
     Indication: DEPRESSION
     Dosage: UNK
  9. TEMOVATE [Concomitant]
     Indication: PSORIASIS
     Dosage: 0.05 % FORMULATION
  10. TEMOVATE [Concomitant]
     Indication: TINEA INFECTION
  11. COLACE [Concomitant]
     Indication: CONSTIPATION
     Dosage: UNK
  12. TOVIAZ [Concomitant]
     Indication: HYPERTONIC BLADDER
     Dosage: UNK
     Dates: start: 20121205
  13. PROSCAR [Concomitant]
     Indication: BENIGN PROSTATIC HYPERPLASIA
     Dosage: UNK
  14. LASIX [Concomitant]
     Indication: OEDEMA
     Dosage: UNK
  15. HYDROCORTISONE [Concomitant]
     Indication: PSORIASIS
     Dosage: 2.5 %, FORMULATION
  16. HYDROCORTISONE [Concomitant]
     Indication: TINEA INFECTION
  17. CLARITIN [Concomitant]
     Indication: PSORIASIS
     Dosage: 10 MG, 1X/DAY
     Dates: start: 20120628
  18. CLARITIN [Concomitant]
     Indication: TINEA INFECTION
  19. NIACIN [Concomitant]
     Indication: CARDIOVASCULAR EVENT PROPHYLAXIS
     Dosage: UNK
  20. ROPINIROLE HYDROCHLORIDE [Concomitant]
     Indication: RESTLESS LEGS SYNDROME
     Dosage: UNK
     Dates: start: 20120628
  21. ZOCOR [Concomitant]
     Indication: DYSLIPIDAEMIA
     Dosage: UNK
     Dates: start: 20050929
  22. PROTONIX [Concomitant]
     Indication: GASTROOESOPHAGEAL REFLUX DISEASE
     Dosage: UNK
     Dates: start: 20121205
  23. TAMSULOSIN HCL [Concomitant]
     Indication: BENIGN PROSTATIC HYPERPLASIA
     Dosage: UNK
     Dates: start: 20120814
  24. POLYETHYLENE GLYCOL [Concomitant]
     Indication: CONSTIPATION
     Dosage: UNK
     Dates: start: 20121205
  25. ISOSORBIDE MONONITRATE [Concomitant]
     Indication: CORONARY ARTERY DISEASE
     Dosage: UNK
     Dates: start: 20121205
  26. CLOTRIMAZOLE [Concomitant]
     Indication: PSORIASIS
     Dosage: 1 % FORMULATION
     Route: 061
  27. CLOTRIMAZOLE [Concomitant]
     Indication: TINEA INFECTION
  28. GLUCOSAMINE CHONDROITIN [Concomitant]
     Indication: OSTEOARTHRITIS
     Dosage: UNK
  29. LISINOPRIL [Concomitant]
     Indication: HYPERTENSION
     Dosage: UNK
  30. PREDNISONE [Concomitant]
     Indication: PAIN MANAGEMENT
     Dosage: UNK
     Dates: start: 20130523
  31. PREDNISONE [Concomitant]
     Indication: BACK PAIN
  32. LEVAQUIN [Concomitant]
     Indication: PROPHYLAXIS
     Dosage: UNK
     Dates: start: 20130612
  33. ACYCLOVIR [Concomitant]
     Indication: PROPHYLAXIS
     Dosage: UNK
     Dates: start: 20130612
  34. ZOFRAN [Concomitant]
     Indication: PROPHYLAXIS OF NAUSEA AND VOMITING
     Dosage: UNK
     Dates: start: 20130612
  35. LORAZEPAM [Concomitant]
     Indication: PROPHYLAXIS OF NAUSEA AND VOMITING
     Dosage: UNK
     Dates: start: 20130612
  36. SENNA [Concomitant]
     Indication: CONSTIPATION
     Dosage: UNK
     Dates: start: 20130612
  37. MYCELEX [Concomitant]
     Indication: ORAL PAIN
     Dosage: TROCHES
     Dates: start: 20130612
  38. ASPIRIN [Concomitant]
     Indication: THROMBOSIS PROPHYLAXIS
     Dosage: UNK
     Dates: end: 20130611
  39. BISACODYL [Concomitant]
     Indication: CONSTIPATION
     Dosage: UNK
     Dates: end: 20130611
  40. HYDREA [Concomitant]
     Indication: WHITE BLOOD CELL COUNT INCREASED
     Dosage: 2 G, 3X/DAY
     Route: 048
     Dates: start: 20130610, end: 20130612
  41. FISH OIL [Concomitant]
     Indication: SUPPLEMENTATION THERAPY
     Dosage: UNK

REACTIONS (4)
  - Disease progression [Fatal]
  - Acute myeloid leukaemia [Fatal]
  - Acute myocardial infarction [Fatal]
  - Cardiac failure congestive [Fatal]
